FAERS Safety Report 9115862 (Version 1)
Quarter: 2013Q1

REPORT INFORMATION
  Report Type: Spontaneous
  Country: US (occurrence: US)
  Receive Date: 20130225
  Receipt Date: 20130225
  Transmission Date: 20140127
  Serious: Yes (Hospitalization, Other)
  Sender: FDA-Public Use
  Company Number: US-ELI_LILLY_AND_COMPANY-US201302006341

PATIENT
  Age: 23 Year
  Sex: Female

DRUGS (1)
  1. DULOXETINE HYDROCHLORIDE [Suspect]

REACTIONS (4)
  - Suicidal ideation [Unknown]
  - Intentional overdose [Unknown]
  - Maternal exposure during pregnancy [Unknown]
  - No adverse event [None]
